FAERS Safety Report 15991546 (Version 1)
Quarter: 2019Q1

REPORT INFORMATION
  Report Type: Spontaneous
  Country: CN (occurrence: CN)
  Receive Date: 20190221
  Receipt Date: 20190221
  Transmission Date: 20190418
  Serious: Yes (Other)
  Sender: FDA-Public Use
  Company Number: CN-PFIZER INC-2019073693

PATIENT
  Age: 45 Year
  Sex: Female
  Weight: 43 kg

DRUGS (4)
  1. SODIUM CHLORIDE. [Concomitant]
     Active Substance: SODIUM CHLORIDE
     Indication: VEHICLE SOLUTION USE
     Dosage: 40 ML, 1X/DAY
     Route: 042
     Dates: start: 20190128, end: 20190128
  2. PHARMORUBICIN [Suspect]
     Active Substance: EPIRUBICIN
     Indication: NEOPLASM
     Dosage: 120 MG, CYCLIC (ONCE A DAY)
     Route: 041
     Dates: start: 20190128, end: 20190128
  3. CYCLOPHOSPHAMIDE. [Suspect]
     Active Substance: CYCLOPHOSPHAMIDE
     Indication: NEOPLASM
     Dosage: 800 MG, CYCLIC (ONCE A DAY)
     Route: 042
     Dates: start: 20190128, end: 20190128
  4. GLUCOSE INJECTION [Concomitant]
     Active Substance: DEXTROSE
     Indication: VEHICLE SOLUTION USE
     Dosage: 250 ML, 1X/DAY
     Route: 041
     Dates: start: 20190128, end: 20190128

REACTIONS (2)
  - White blood cell count decreased [Recovering/Resolving]
  - Neutrophil count decreased [Recovering/Resolving]

NARRATIVE: CASE EVENT DATE: 20190206
